FAERS Safety Report 6576534-0 (Version None)
Quarter: 2010Q1

REPORT INFORMATION
  Report Type: 
  Country: None (occurrence: None)
  Receive Date: 20100210
  Receipt Date: 20100130
  Transmission Date: 20100710
  Serious: Yes (Other)
  Sender: FDA-Public Use
  Company Number: US-SANOFI-AVENTIS-2010SA006183

PATIENT
  Age: 60 Year
  Sex: Male

DRUGS (5)
  1. LANTUS [Suspect]
     Indication: TYPE 2 DIABETES MELLITUS
     Dosage: DOSE:20 UNIT(S)
     Route: 058
     Dates: start: 20070101
  2. OPTICLICK [Suspect]
     Indication: TYPE 2 DIABETES MELLITUS
     Dates: start: 20070101
  3. GLUCOPHAGE [Concomitant]
  4. GLUCOTROL [Concomitant]
  5. ACTOS [Concomitant]

REACTIONS (4)
  - BLOOD GLUCOSE INCREASED [None]
  - EYE HAEMORRHAGE [None]
  - VISUAL ACUITY REDUCED [None]
  - VITREOUS FLOATERS [None]
